FAERS Safety Report 9171750 (Version 1)
Quarter: 2013Q1

REPORT INFORMATION
  Report Type: Spontaneous
  Country: US (occurrence: None)
  Receive Date: 20130313
  Receipt Date: 20130313
  Transmission Date: 20140127
  Serious: Yes (Other)
  Sender: FDA-Public Use
  Company Number: 1622029

PATIENT
  Sex: 0

DRUGS (1)
  1. MAGNESIUM SULFATE [Suspect]
     Indication: PRODUCT USED FOR UNKNOWN INDICATION
     Dosage: NOT  REPORTED,  NOT  REPORTED,   ( UNKNOWN )?INTRAVENOUS  DRIP?UNKNOWN  -  UNKNOWN  ( UNKNOWN )
     Route: 041

REACTIONS (3)
  - Incorrect dose administered by device [None]
  - Dizziness [None]
  - Feeling hot [None]
